FAERS Safety Report 8516938-X (Version None)
Quarter: 2012Q3

REPORT INFORMATION
  Report Type: 
  Country: None (occurrence: None)
  Receive Date: 20120706
  Receipt Date: 20120625
  Transmission Date: 20120928
  Serious: Yes (Hospitalization, Other)
  Sender: FDA-Public Use
  Company Number: 2012MA007895

PATIENT
  Age: 63 Year
  Sex: Male

DRUGS (1)
  1. CARBAMAZEPINE [Suspect]
     Indication: PRODUCT USED FOR UNKNOWN INDICATION

REACTIONS (5)
  - DRUG RASH WITH EOSINOPHILIA AND SYSTEMIC SYMPTOMS [None]
  - EPSTEIN-BARR VIRUS INFECTION [None]
  - TOXIC SKIN ERUPTION [None]
  - HUMAN HERPESVIRUS 7 INFECTION [None]
  - CYTOLYTIC HEPATITIS [None]
